FAERS Safety Report 8825777 (Version 1)
Quarter: 2012Q4

REPORT INFORMATION
  Report Type: 
  Country: US (occurrence: US)
  Receive Date: 20121004
  Receipt Date: 20121004
  Transmission Date: 20130627
  Serious: No
  Sender: FDA-Public Use
  Company Number: US-TEVA-360088USA

PATIENT
  Sex: Male

DRUGS (1)
  1. FOLINIC ACID [Suspect]

REACTIONS (2)
  - Abdominal discomfort [Unknown]
  - Disturbance in attention [Unknown]
